FAERS Safety Report 7441384-X (Version None)
Quarter: 2011Q2

REPORT INFORMATION
  Report Type: 
  Country: None (occurrence: None)
  Receive Date: 20110428
  Receipt Date: 20110414
  Transmission Date: 20111010
  Serious: Yes (Other)
  Sender: FDA-Public Use
  Company Number: TR-RANBAXY-2011RR-43945

PATIENT
  Age: 34 Year
  Sex: Female

DRUGS (4)
  1. TOPIRAMATE [Suspect]
  2. BARBEXACLONE [Suspect]
  3. VALPROIC ACID [Suspect]
     Dosage: 250 MG, UNK
  4. OXCARBAZEPINE [Suspect]

REACTIONS (4)
  - SOMNOLENCE [None]
  - ALTERED STATE OF CONSCIOUSNESS [None]
  - DRUG INTERACTION [None]
  - HYPERAMMONAEMIC ENCEPHALOPATHY [None]
